FAERS Safety Report 7684691-8 (Version None)
Quarter: 2011Q3

REPORT INFORMATION
  Report Type: 
  Country: None (occurrence: None)
  Receive Date: 20110816
  Receipt Date: 20110802
  Transmission Date: 20111222
  Serious: Yes (Other)
  Sender: FDA-Public Use
  Company Number: GB-RANBAXY-2011R1-46803

PATIENT
  Age: 16 Year
  Sex: Female
  Weight: 63 kg

DRUGS (3)
  1. SEROQUEL [Suspect]
     Indication: OBSESSIVE-COMPULSIVE DISORDER
     Dosage: UNK
     Route: 048
  2. SEROQUEL [Suspect]
     Dosage: UNK
     Route: 048
  3. SERTRALINE 50MG TABLETS [Suspect]
     Indication: PRODUCT USED FOR UNKNOWN INDICATION
     Dosage: UNK
     Route: 048

REACTIONS (2)
  - OVERDOSE [None]
  - OFF LABEL USE [None]
